FAERS Safety Report 9935227 (Version 1)
Quarter: 2014Q1

REPORT INFORMATION
  Report Type: Spontaneous
  Country: IN (occurrence: IN)
  Receive Date: 20140228
  Receipt Date: 20140228
  Transmission Date: 20141002
  Serious: Yes (Death)
  Sender: FDA-Public Use
  Company Number: IN-009507513-1402IND012335

PATIENT
  Age: 74 Year
  Sex: Male

DRUGS (1)
  1. JANUMET [Suspect]
     Indication: DIABETES MELLITUS
     Dosage: STRENGTH: 50/500; DOSE 1; FREQUENCY 1
     Route: 048

REACTIONS (4)
  - Gastrointestinal disorder [Fatal]
  - Dyspnoea [Fatal]
  - Feeling abnormal [Fatal]
  - Inappropriate schedule of drug administration [Unknown]
